FAERS Safety Report 6018148-7 (Version None)
Quarter: 2008Q4

REPORT INFORMATION
  Report Type: 
  Country: None (occurrence: None)
  Receive Date: 20081223
  Receipt Date: 20081215
  Transmission Date: 20090506
  Serious: Yes (Death)
  Sender: FDA-Public Use
  Company Number: US-PFIZER INC-2008154148

PATIENT
  Age: 20 Year
  Sex: Male

DRUGS (6)
  1. ALPRAZOLAM [Suspect]
  2. COCAINE [Suspect]
  3. MARIJUANA [Suspect]
  4. OPIOIDS [Suspect]
  5. PROMETHAZINE W/ CODEINE [Suspect]
  6. ZOLPIDEM [Suspect]

REACTIONS (3)
  - CARDIAC ARREST [None]
  - DEATH [None]
  - RESPIRATORY ARREST [None]
